FAERS Safety Report 5841894-2 (Version None)
Quarter: 2008Q3

REPORT INFORMATION
  Report Type: 
  Country: None (occurrence: None)
  Receive Date: 20080811
  Receipt Date: 20080811
  Transmission Date: 20090109
  Serious: Yes (Other)
  Sender: FDA-Public Use
  Company Number: None

PATIENT
  Age: 28 Year
  Sex: Female
  Weight: 78.4723 kg

DRUGS (2)
  1. CYMBALTA [Suspect]
     Indication: MAJOR DEPRESSION
     Dosage: 60 MG 1X DAILY PO
     Route: 048
     Dates: start: 20070210, end: 20080803
  2. CYMBALTA [Suspect]
     Dosage: 30 MG 1X DAILY PO
     Route: 048

REACTIONS (19)
  - ARTHRALGIA [None]
  - CHILLS [None]
  - CONFUSIONAL STATE [None]
  - CRYING [None]
  - DEPRESSION [None]
  - DIZZINESS [None]
  - FEELING OF DESPAIR [None]
  - HALLUCINATION, VISUAL [None]
  - HYPERHIDROSIS [None]
  - LETHARGY [None]
  - LIVER DISORDER [None]
  - MOOD SWINGS [None]
  - MUSCLE SPASMS [None]
  - MYALGIA [None]
  - NAUSEA [None]
  - PAIN [None]
  - PARAESTHESIA [None]
  - POISONING [None]
  - TREMOR [None]
